FAERS Safety Report 6539158-7 (Version None)
Quarter: 2010Q1

REPORT INFORMATION
  Report Type: 
  Country: None (occurrence: None)
  Receive Date: 20100115
  Receipt Date: 20100108
  Transmission Date: 20100710
  Serious: Yes (Other)
  Sender: FDA-Public Use
  Company Number: US-BAYER-200942146NA

PATIENT
  Age: 30 Year
  Sex: Female
  Weight: 108 kg

DRUGS (1)
  1. MIRENA [Suspect]
     Indication: CONTRACEPTION
     Dosage: CONTINUOUS
     Route: 015
     Dates: start: 20090915, end: 20091203

REACTIONS (2)
  - PROCEDURAL PAIN [None]
  - UTERINE PERFORATION [None]
